FAERS Safety Report 8417973-2 (Version None)
Quarter: 2012Q2

REPORT INFORMATION
  Report Type: 
  Country: None (occurrence: None)
  Receive Date: 20120531
  Receipt Date: 20120529
  Transmission Date: 20120825
  Serious: Yes (Hospitalization, Other)
  Sender: FDA-Public Use
  Company Number: ADR-2012-00283

PATIENT
  Sex: Male

DRUGS (2)
  1. LIORESAL [Suspect]
     Indication: CEREBRAL PALSY
     Dosage: 450.2 MCG/DAY
  2. LIORESAL [Suspect]
     Indication: MUSCLE SPASTICITY
     Dosage: 450.2 MCG/DAY

REACTIONS (12)
  - DEVICE OCCLUSION [None]
  - PNEUMONIA [None]
  - IMPLANT SITE SWELLING [None]
  - INJURY [None]
  - DEVICE MALFUNCTION [None]
  - OEDEMA PERIPHERAL [None]
  - DRUG WITHDRAWAL SYNDROME [None]
  - PUMP RESERVOIR ISSUE [None]
  - ABNORMAL BEHAVIOUR [None]
  - IMPLANT SITE PAIN [None]
  - HYPERTONIA [None]
  - MALAISE [None]
